FAERS Safety Report 5094466-4 (Version None)
Quarter: 2006Q3

REPORT INFORMATION
  Report Type: 
  Country: None (occurrence: None)
  Receive Date: 20060830
  Receipt Date: 20060815
  Transmission Date: 20061208
  Serious: Yes (Other)
  Sender: FDA-Public Use
  Company Number: GB200606004967

PATIENT
  Age: 65 Year
  Sex: Female

DRUGS (12)
  1. FORTEO [Suspect]
     Indication: OSTEOPOROSIS
     Dosage: 20 UG, DAILY (1/D), SUBCUTANEOUS
     Route: 058
     Dates: start: 20060606, end: 20060808
  2. FORTEO [Concomitant]
  3. PREDNISOLONE [Concomitant]
  4. VITAMIN B COMPLEX CAP [Concomitant]
  5. SIMVASTATIN [Concomitant]
  6. FUROSEMIDE [Concomitant]
  7. TRYPTOPHAN, L- [Concomitant]
  8. VENTOLIN [Concomitant]
  9. SERETIDE (FLUTICASONE PROPIONATE, SALMETEROL) [Concomitant]
  10. LEVOTHYROXINE SODIUM [Concomitant]
  11. IPRATROPIUM BROMIDE [Concomitant]
  12. SALAMOL (SALBUTAMOL SULFATE) [Concomitant]

REACTIONS (5)
  - BONE PAIN [None]
  - CHRONIC OBSTRUCTIVE PULMONARY DISEASE [None]
  - DYSPNOEA [None]
  - MOBILITY DECREASED [None]
  - PAIN IN EXTREMITY [None]
